FAERS Safety Report 12428968 (Version 6)
Quarter: 2017Q3

REPORT INFORMATION
  Report Type: Report from Study
  Country: BR (occurrence: BR)
  Receive Date: 20160602
  Receipt Date: 20170809
  Transmission Date: 20171127
  Serious: Yes (Other)
  Sender: FDA-Public Use
  Company Number: BR-JNJFOC-20160528913

PATIENT
  Age: 66 Year
  Sex: Female
  Weight: 65 kg

DRUGS (13)
  1. CALCIUM [Concomitant]
     Active Substance: CALCIUM
     Route: 065
  2. FORMOTEROL FUMARATE [Concomitant]
     Active Substance: FORMOTEROL FUMARATE
     Route: 065
  3. GABAPENTINA [Concomitant]
     Active Substance: GABAPENTIN
     Route: 065
  4. DEOCIL [Concomitant]
     Active Substance: KETOROLAC TROMETHAMINE
     Route: 065
  5. SIMPONI [Suspect]
     Active Substance: GOLIMUMAB
     Indication: RHEUMATOID ARTHRITIS
     Route: 058
     Dates: start: 20150331, end: 20160901
  6. TROMETAMOL [Concomitant]
     Active Substance: TROMETHAMINE
     Route: 065
  7. TRAMADOL. [Concomitant]
     Active Substance: TRAMADOL
     Route: 065
  8. PREDNISONE. [Concomitant]
     Active Substance: PREDNISONE
     Route: 065
  9. ENDROSTAN [Concomitant]
     Active Substance: ALENDRONATE SODIUM
     Route: 065
  10. OMEPRAZOLE. [Concomitant]
     Active Substance: OMEPRAZOLE
     Route: 065
  11. PARACETAMOL [Concomitant]
     Active Substance: ACETAMINOPHEN
     Route: 065
  12. DIOVAN [Concomitant]
     Active Substance: VALSARTAN
     Route: 065
  13. DOMPERIDONE [Concomitant]
     Active Substance: DOMPERIDONE
     Route: 065

REACTIONS (12)
  - Bladder operation [Unknown]
  - Diarrhoea [Unknown]
  - Weight decreased [Unknown]
  - Rheumatoid arthritis [Unknown]
  - Vomiting [Unknown]
  - White blood cell count decreased [Not Recovered/Not Resolved]
  - Influenza [Unknown]
  - Weight increased [Unknown]
  - Gastrointestinal disorder [Unknown]
  - Drug ineffective [Unknown]
  - Muscle spasms [Unknown]
  - Herpes zoster [Unknown]

NARRATIVE: CASE EVENT DATE: 201605
